FAERS Safety Report 22312363 (Version 2)
Quarter: 2023Q2

REPORT INFORMATION
  Report Type: Spontaneous
  Country: FR (occurrence: FR)
  Receive Date: 20230512
  Receipt Date: 20230515
  Transmission Date: 20230721
  Serious: Yes (Death, Hospitalization, Other)
  Sender: FDA-Public Use
  Company Number: FR-002147023-NVSC2023FR106961

PATIENT
  Sex: Male

DRUGS (4)
  1. DABRAFENIB [Suspect]
     Active Substance: DABRAFENIB
     Indication: Anaplastic thyroid cancer
     Dosage: UNK
     Route: 065
     Dates: start: 20230331, end: 20230418
  2. DABRAFENIB [Suspect]
     Active Substance: DABRAFENIB
     Dosage: 100 UNK, BID (MORNING  AND  EVENING)
     Route: 065
     Dates: start: 20230421
  3. TRAMETINIB [Suspect]
     Active Substance: TRAMETINIB
     Indication: Anaplastic thyroid cancer
     Dosage: UNK
     Route: 065
     Dates: start: 20230331, end: 20230418
  4. TRAMETINIB [Suspect]
     Active Substance: TRAMETINIB
     Dosage: 1 MG
     Route: 065
     Dates: start: 20230421

REACTIONS (4)
  - Death [Fatal]
  - Thrombotic microangiopathy [Unknown]
  - Haemophagocytic lymphohistiocytosis [Unknown]
  - Thrombocytopenia [Unknown]

NARRATIVE: CASE EVENT DATE: 20230426
